FAERS Safety Report 8139670-3 (Version None)
Quarter: 2012Q1

REPORT INFORMATION
  Report Type: 
  Country: None (occurrence: None)
  Receive Date: 20120215
  Receipt Date: 20120209
  Transmission Date: 20120608
  Serious: Yes (Death, Other)
  Sender: FDA-Public Use
  Company Number: PHHY2011MX105427

PATIENT
  Sex: Female

DRUGS (1)
  1. GLEEVEC [Suspect]
     Indication: CHRONIC MYELOID LEUKAEMIA
     Dosage: 600 MG, DAILY
     Route: 048
     Dates: start: 20111017, end: 20111103

REACTIONS (4)
  - MYOCARDIAL INFARCTION [None]
  - DEATH [None]
  - EPISTAXIS [None]
  - RENAL FAILURE CHRONIC [None]
